FAERS Safety Report 23815707 (Version 1)
Quarter: 2024Q2

REPORT INFORMATION
  Report Type: Spontaneous
  Country: IT (occurrence: IT)
  Receive Date: 20240503
  Receipt Date: 20240503
  Transmission Date: 20240716
  Serious: Yes (Other)
  Sender: FDA-Public Use
  Company Number: IT-MINISAL02-982005

PATIENT
  Age: 94 Year
  Sex: Female

DRUGS (9)
  1. DELORAZEPAM [Suspect]
     Active Substance: DELORAZEPAM
     Indication: Agitation
     Dosage: 1 MILLIGRAM PER MILLILITRE, TWO TIMES A DAY (4 GTT ORE 12+4 GTT ORE 20)
     Route: 048
  2. DELORAZEPAM [Suspect]
     Active Substance: DELORAZEPAM
     Indication: Insomnia
  3. DELORAZEPAM [Suspect]
     Active Substance: DELORAZEPAM
     Indication: Anxiety
  4. SERTRALINE [Suspect]
     Active Substance: SERTRALINE HYDROCHLORIDE
     Indication: Depression
     Dosage: 75 MILLIGRAM (50 MG 1 CPR + 1/2 CPR ORE 8)
     Route: 048
  5. TRAZODONE [Suspect]
     Active Substance: TRAZODONE HYDROCHLORIDE
     Indication: Depression
     Dosage: 75 MILLIGRAM, ONCE A DAY (75 MG 1 CPR ORE 20)
     Route: 048
  6. APIXABAN [Concomitant]
     Active Substance: APIXABAN
     Indication: Atrial fibrillation
     Dosage: 5 MILLIGRAM (1 CPR 2.5 MG ORE 8-20)
     Route: 048
  7. FUROSEMIDE [Concomitant]
     Active Substance: FUROSEMIDE
     Indication: Hypertension
     Dosage: 25 + 37 MG 1 CPR ORE 8
     Route: 048
  8. BISOPROLOL FUMARATE [Concomitant]
     Active Substance: BISOPROLOL FUMARATE
     Indication: Hypertension
     Dosage: 1.25 MILLIGRAM (1.25 MG 1 CPR ORE 8)
     Route: 048
  9. LEVOTHYROXINE [Concomitant]
     Active Substance: LEVOTHYROXINE\LEVOTHYROXINE SODIUM
     Indication: Hypothyroidism
     Dosage: 125 MICROGRAM, ONCE A DAY (1 CPR ORE 8 DA LUNED? A SABATO)
     Route: 048

REACTIONS (3)
  - Hypoxia [Not Recovered/Not Resolved]
  - Fall [Not Recovered/Not Resolved]
  - Psychomotor hyperactivity [Not Recovered/Not Resolved]

NARRATIVE: CASE EVENT DATE: 20240409
